FAERS Safety Report 17996899 (Version 1)
Quarter: 2020Q3

REPORT INFORMATION
  Report Type: Spontaneous
  Country: US (occurrence: US)
  Receive Date: 20200708
  Receipt Date: 20200708
  Transmission Date: 20201103
  Serious: Yes (Other)
  Sender: FDA-Public Use
  Company Number: US-PURDUE-USA-2020-0155925

PATIENT
  Sex: Male

DRUGS (1)
  1. HYDROCODONE BITARTRATE AND ACETAMINOPHEN [Suspect]
     Active Substance: ACETAMINOPHEN\HYDROCODONE BITARTRATE
     Indication: PRODUCT USED FOR UNKNOWN INDICATION
     Route: 048

REACTIONS (12)
  - Disability [Unknown]
  - Depression [Unknown]
  - Amnesia [Unknown]
  - Loss of consciousness [Recovered/Resolved]
  - Drug dependence [Unknown]
  - Headache [Not Recovered/Not Resolved]
  - Road traffic accident [Recovered/Resolved with Sequelae]
  - Impaired work ability [Not Recovered/Not Resolved]
  - Muscle rupture [Recovered/Resolved with Sequelae]
  - Overdose [Unknown]
  - Tendon rupture [Unknown]
  - Spinal cord injury [Unknown]
